FAERS Safety Report 15571641 (Version 1)
Quarter: 2018Q4

REPORT INFORMATION
  Report Type: Spontaneous
  Country: FR (occurrence: FR)
  Receive Date: 20181031
  Receipt Date: 20181031
  Transmission Date: 20190205
  Serious: Yes (Other)
  Sender: FDA-Public Use
  Company Number: FR-MYLANLABS-2018M1081193

PATIENT
  Age: 61 Year
  Sex: Female
  Weight: 64 kg

DRUGS (1)
  1. OESCLIM [Suspect]
     Active Substance: ESTRADIOL
     Indication: MENORRHAGIA
     Dosage: 1 PATCH DE 37.5 ?G TOUS LES 3 JOURS
     Route: 003
     Dates: start: 1998, end: 20180504

REACTIONS (1)
  - Meningioma [Not Recovered/Not Resolved]

NARRATIVE: CASE EVENT DATE: 20180504
